FAERS Safety Report 6318050-7 (Version None)
Quarter: 2009Q3

REPORT INFORMATION
  Report Type: 
  Country: None (occurrence: None)
  Receive Date: 20090820
  Receipt Date: 20090820
  Transmission Date: 20100115
  Serious: Yes (Hospitalization)
  Sender: FDA-Public Use
  Company Number: None

PATIENT
  Age: 83 Year
  Sex: Male

DRUGS (1)
  1. LANTHANUM CARBONATE [Suspect]
     Indication: BLOOD PHOSPHORUS
     Dosage: 500 MG TID PO
     Route: 048
     Dates: start: 20090428, end: 20090706

REACTIONS (3)
  - BLISTER [None]
  - PRURITUS [None]
  - URTICARIA [None]
